FAERS Safety Report 7729654-9 (Version None)
Quarter: 2011Q3

REPORT INFORMATION
  Report Type: 
  Country: None (occurrence: None)
  Receive Date: 20110906
  Receipt Date: 20110818
  Transmission Date: 20111222
  Serious: No
  Sender: FDA-Public Use
  Company Number: US-ROXANE LABORATORIES, INC.-2011-RO-00996RO

PATIENT
  Sex: Male

DRUGS (14)
  1. LAMICTAL [Concomitant]
     Dosage: 400 MG
  2. METHOCARBAMOL [Concomitant]
     Dosage: 500 MG
  3. BECONASE AQ [Concomitant]
  4. PROTONIX [Concomitant]
     Dosage: 40 MG
  5. LORAZEPAM [Concomitant]
  6. IPRATROPIUM BROMIDE [Suspect]
     Indication: SINUS DISORDER
     Route: 045
  7. ATENOLOL [Concomitant]
     Dosage: 50 MG
  8. VITAMIN B-12 [Concomitant]
  9. CELEBREX [Concomitant]
     Dosage: 400 MG
  10. DOCUSATE SODIUM [Concomitant]
     Dosage: 400 MG
  11. FAMVIR [Concomitant]
  12. FISH OIL [Concomitant]
     Dosage: 2000 MG
  13. FLONASE [Concomitant]
  14. MISOPROSTOL [Concomitant]
     Dosage: 600 MG

REACTIONS (1)
  - PRODUCT ODOUR ABNORMAL [None]
